FAERS Safety Report 11520919 (Version 1)
Quarter: 2015Q3

REPORT INFORMATION
  Report Type: Spontaneous
  Country: US (occurrence: None)
  Receive Date: 20150917
  Receipt Date: 20150917
  Transmission Date: 20151125
  Serious: No
  Sender: FDA-Public Use
  Company Number: None

PATIENT
  Sex: Female
  Weight: 83.92 kg

DRUGS (6)
  1. HYDROCHLOROTHIAZIDE [Concomitant]
  2. VITAMIN D [Concomitant]
  3. TOLTERODINE ER [Concomitant]
  4. LOSARTAN. [Concomitant]
     Active Substance: LOSARTAN
  5. POTASSIUM [Concomitant]
  6. METOPROLOL SUCC TAB 50MG ER [Suspect]
     Active Substance: METOPROLOL
     Dosage: 1 PILL A DAY
     Route: 048
     Dates: start: 20150826, end: 20150904

REACTIONS (4)
  - Gait disturbance [None]
  - Product substitution issue [None]
  - Arthralgia [None]
  - Pain in extremity [None]
